FAERS Safety Report 22528395 (Version 1)
Quarter: 2023Q2

REPORT INFORMATION
  Report Type: Other
  Country: None (occurrence: US)
  Receive Date: 20230607
  Receipt Date: 20230607
  Transmission Date: 20230721
  Serious: Yes (Other)
  Sender: FDA-Public Use
  Company Number: US-Appco Pharma LLC-2142406

PATIENT
  Age: 63 Year
  Sex: Female

DRUGS (7)
  1. DOXYCYCLINE [Suspect]
     Active Substance: DOXYCYCLINE
     Indication: Sjogren^s syndrome
     Route: 048
  2. LOTEPREDNOL [Suspect]
     Active Substance: LOTEPREDNOL
     Route: 065
  3. BACITRACIN [Suspect]
     Active Substance: BACITRACIN
     Route: 065
  4. POLYMYXIN [Suspect]
     Active Substance: POLYMYXIN
     Route: 065
  5. VITAMIN A [Suspect]
     Active Substance: VITAMIN A
     Route: 065
  6. ERYTHROMYCIN [Suspect]
     Active Substance: ERYTHROMYCIN
     Route: 065
  7. CYCLOSPORINE [Suspect]
     Active Substance: CYCLOSPORINE
     Route: 065

REACTIONS (1)
  - Treatment failure [Unknown]
